FAERS Safety Report 12309958 (Version 4)
Quarter: 2016Q3

REPORT INFORMATION
  Report Type: Spontaneous
  Country: BR (occurrence: BR)
  Receive Date: 20160427
  Receipt Date: 20160803
  Transmission Date: 20161109
  Serious: Yes (Death, Other)
  Sender: FDA-Public Use
  Company Number: BR-PFIZER INC-2016006675

PATIENT
  Age: 53 Year
  Sex: Female
  Weight: 51 kg

DRUGS (6)
  1. PANTOPRAZOL [Concomitant]
     Active Substance: PANTOPRAZOLE SODIUM
     Dosage: 1 TABLET 40 MG, IN THE MORNING
  2. FOLIC ACID. [Concomitant]
     Active Substance: FOLIC ACID
     Dosage: 3 TABLETS, PER WEEK
     Dates: start: 201601
  3. SUTENT [Suspect]
     Active Substance: SUNITINIB MALATE
     Indication: GASTROINTESTINAL STROMAL CANCER
     Dosage: 50 MG, CYCLE 4 PER 2
     Route: 048
     Dates: start: 20130720, end: 2016
  4. PROSURE [Concomitant]
     Dosage: UNK
     Dates: start: 201502
  5. PIDOMAG D3 [Concomitant]
     Dosage: UNK
  6. SUTENT [Suspect]
     Active Substance: SUNITINIB MALATE
     Indication: SMALL INTESTINE CARCINOMA

REACTIONS (17)
  - Liver disorder [Unknown]
  - Vomiting [Unknown]
  - Disease progression [Unknown]
  - Death [Fatal]
  - Pain [Not Recovered/Not Resolved]
  - Inappropriate schedule of drug administration [Not Recovered/Not Resolved]
  - Feeling abnormal [Unknown]
  - Retching [Not Recovered/Not Resolved]
  - Weight fluctuation [Unknown]
  - Haemorrhage [Unknown]
  - Abdominal distension [Not Recovered/Not Resolved]
  - Eating disorder [Not Recovered/Not Resolved]
  - Nervous system disorder [Unknown]
  - Blood pressure fluctuation [Unknown]
  - Drug ineffective [Unknown]
  - Gastrointestinal stromal cancer [Unknown]
  - Nausea [Unknown]

NARRATIVE: CASE EVENT DATE: 201603
